FAERS Safety Report 12333939 (Version 1)
Quarter: 2016Q2

REPORT INFORMATION
  Report Type: Spontaneous
  Country: FR (occurrence: FR)
  Receive Date: 20160504
  Receipt Date: 20160504
  Transmission Date: 20160815
  Serious: Yes (Hospitalization)
  Sender: FDA-Public Use
  Company Number: FR-BAYER-2016-085519

PATIENT
  Age: 38 Year
  Sex: Female

DRUGS (1)
  1. MIRENA [Suspect]
     Active Substance: LEVONORGESTREL
     Dosage: UNK
     Dates: start: 20160326, end: 20160329

REACTIONS (4)
  - Beta haemolytic streptococcal infection [None]
  - Vaginal haemorrhage [None]
  - Pyrexia [None]
  - Back pain [None]

NARRATIVE: CASE EVENT DATE: 20160327
